FAERS Safety Report 6455501-1 (Version None)
Quarter: 2009Q4

REPORT INFORMATION
  Report Type: 
  Country: None (occurrence: None)
  Receive Date: 20091125
  Receipt Date: 20091116
  Transmission Date: 20100525
  Serious: Yes (Other)
  Sender: FDA-Public Use
  Company Number: BR-ABBOTT-09P-020-0608761-00

PATIENT
  Sex: Male
  Weight: 73 kg

DRUGS (4)
  1. HUMIRA [Suspect]
     Indication: ANKYLOSING SPONDYLITIS
     Route: 058
     Dates: start: 20070101, end: 20080701
  2. HUMIRA [Suspect]
     Route: 058
     Dates: start: 20080801
  3. AAS [Concomitant]
     Indication: ANGIOPATHY
     Route: 048
     Dates: start: 20080801
  4. SIMVASTATIN [Concomitant]
     Indication: ANGIOPATHY
     Route: 048
     Dates: start: 20080801

REACTIONS (1)
  - VENOUS OCCLUSION [None]
